FAERS Safety Report 25690799 (Version 3)
Quarter: 2025Q3

REPORT INFORMATION
  Report Type: Spontaneous
  Country: JP (occurrence: JP)
  Receive Date: 20250818
  Receipt Date: 20250903
  Transmission Date: 20251021
  Serious: Yes (Life-Threatening, Hospitalization, Other)
  Sender: SANOFI AVENTIS
  Company Number: JP-DialogSolutions-SAAVPROD-PI811609-C1

PATIENT
  Age: 72 Year
  Sex: Male

DRUGS (1)
  1. CLOPIDOGREL BISULFATE [Suspect]
     Active Substance: CLOPIDOGREL BISULFATE
     Indication: Cerebral infarction
     Route: 065

REACTIONS (13)
  - Factor XIII deficiency [Recovered/Resolved]
  - Epistaxis [Recovered/Resolved]
  - Cerebral infarction [Recovered/Resolved]
  - Retroperitoneal haematoma [Recovered/Resolved]
  - Haematoma muscle [Recovered/Resolved]
  - Disease progression [Recovered/Resolved]
  - Abdominal pain [Recovered/Resolved]
  - Back pain [Recovered/Resolved]
  - Leukopenia [Recovered/Resolved]
  - Anaemia [Recovered/Resolved]
  - Inflammation [Recovered/Resolved]
  - Renal impairment [Recovered/Resolved]
  - Electrolyte imbalance [Recovered/Resolved]
